FAERS Safety Report 5087799-9 (Version None)
Quarter: 2006Q3

REPORT INFORMATION
  Report Type: 
  Country: None (occurrence: None)
  Receive Date: 20060821
  Receipt Date: 20060821
  Transmission Date: 20061208
  Serious: Yes (Other)
  Sender: FDA-Public Use
  Company Number: None

PATIENT
  Age: 47 Year
  Sex: Male
  Weight: 81.6475 kg

DRUGS (1)
  1. ROSIGLITAZONE MALEATE [Suspect]
     Indication: DIABETES MELLITUS
     Dosage: 4 MG   ONCE DAILY   PO
     Route: 048
     Dates: start: 20050101, end: 20060817

REACTIONS (3)
  - DIABETIC RETINOPATHY [None]
  - EYE DISORDER [None]
  - MACULAR OEDEMA [None]
